FAERS Safety Report 8785374 (Version 4)
Quarter: 2013Q3

REPORT INFORMATION
  Report Type: Spontaneous
  Country: US (occurrence: US)
  Receive Date: 20120914
  Receipt Date: 20130710
  Transmission Date: 20140515
  Serious: Yes (Hospitalization, Disabling, Other)
  Sender: FDA-Public Use
  Company Number: US-PFIZER INC-2012225360

PATIENT
  Age: 60 Year
  Sex: Female
  Weight: 46.71 kg

DRUGS (5)
  1. LYRICA [Suspect]
     Indication: FIBROMYALGIA
     Dosage: 300 MG, 2X/DAY
     Dates: end: 20130612
  2. LYRICA [Suspect]
     Indication: ARTHRITIS
  3. MIRALAX [Suspect]
     Indication: IRRITABLE BOWEL SYNDROME
     Dosage: UNK
  4. LITHIUM CARBONATE [Concomitant]
     Indication: BIPOLAR DISORDER
     Dosage: 300 MG, 3X/DAY
  5. LISINOPRIL W/HYDROCHLOROTHIAZIDE [Concomitant]
     Indication: HYPERTENSION
     Dosage: [LISINOPRIL  20MG]/ [HYDROCHLOROTHIAZIDE 12.5MG], DAILY

REACTIONS (13)
  - Irritable bowel syndrome [Unknown]
  - Anaemia [Unknown]
  - Fall [Unknown]
  - Hypothyroidism [Unknown]
  - Abdominal discomfort [Unknown]
  - Malaise [Unknown]
  - Pain [Recovering/Resolving]
  - Drug ineffective [Unknown]
  - Poor quality drug administered [Unknown]
  - Drug dose omission [Unknown]
  - Bedridden [Not Recovered/Not Resolved]
  - Dehydration [Unknown]
  - Feeling abnormal [Unknown]
